FAERS Safety Report 26206235 (Version 1)
Quarter: 2025Q4

REPORT INFORMATION
  Report Type: Spontaneous
  Country: EU (occurrence: EU)
  Receive Date: 20251229
  Receipt Date: 20251229
  Transmission Date: 20260117
  Serious: Yes (Hospitalization)
  Sender: ROCHE
  Company Number: None

PATIENT
  Age: 67 Year
  Sex: Male

DRUGS (1)
  1. BEVACIZUMAB [Suspect]
     Active Substance: BEVACIZUMAB
     Indication: Adenocarcinoma of colon
     Dates: start: 20250819, end: 20251004

REACTIONS (2)
  - Acute coronary syndrome [Recovered/Resolved with Sequelae]
  - Coronary arterial stent insertion [Recovered/Resolved with Sequelae]

NARRATIVE: CASE EVENT DATE: 20251002
